FAERS Safety Report 25701363 (Version 11)
Quarter: 2025Q4

REPORT INFORMATION
  Report Type: Report from Study
  Country: US (occurrence: US)
  Receive Date: 20250819
  Receipt Date: 20251119
  Transmission Date: 20260117
  Serious: Yes (Hospitalization, Other)
  Sender: AUROBINDO
  Company Number: US-AUROBINDO-AUR-APL-2025-042306

PATIENT
  Age: 79 Year
  Sex: Female

DRUGS (155)
  1. PREDNISONE [Suspect]
     Active Substance: PREDNISONE
     Indication: T-cell lymphoma stage III
     Dosage: 100 MILLIGRAM, CYCLICAL (CYCLE 1 DAY 1)
  2. PREDNISONE [Suspect]
     Active Substance: PREDNISONE
     Dosage: 100 MILLIGRAM, CYCLICAL (CYCLE 2 DAY 1)
     Route: 065
  3. PREDNISONE [Suspect]
     Active Substance: PREDNISONE
     Dosage: 50 MILLIGRAM, CYCLICAL
     Route: 065
  4. PREDNISONE [Suspect]
     Active Substance: PREDNISONE
     Dosage: 100 MILLIGRAM, CYCLICAL
     Route: 065
  5. CYCLOPHOSPHAMIDE [Suspect]
     Active Substance: CYCLOPHOSPHAMIDE
     Indication: T-cell lymphoma stage III
     Dosage: 750 MG/M2, CYCLICAL (CYCLE 1 DAY 1)
     Route: 065
     Dates: start: 20250516, end: 20250516
  6. CYCLOPHOSPHAMIDE [Suspect]
     Active Substance: CYCLOPHOSPHAMIDE
     Dosage: 562.5 MG/M2, CYCLICAL (CYCLE 2 DAY 1)
     Route: 065
     Dates: start: 20250610, end: 20250610
  7. CYCLOPHOSPHAMIDE [Suspect]
     Active Substance: CYCLOPHOSPHAMIDE
     Dosage: 562.5 MG/M2, CYCLICAL (CYCLE 3 DAY 1)
     Route: 065
     Dates: start: 20250724, end: 20250724
  8. CYCLOPHOSPHAMIDE [Suspect]
     Active Substance: CYCLOPHOSPHAMIDE
     Dosage: 750 MG/M2, CYCLICAL (PER SQUARE METRE, ON DAY 1 OF EACH 21 DAYS CYCLE)
  9. CYCLOPHOSPHAMIDE [Suspect]
     Active Substance: CYCLOPHOSPHAMIDE
     Dosage: 562.5 MILLIGRAM/SQ. METER, CYCLICAL
     Dates: start: 20250821, end: 20250821
  10. CYCLOPHOSPHAMIDE [Suspect]
     Active Substance: CYCLOPHOSPHAMIDE
     Dosage: 421.87 MILLIGRAM/SQ. METER, CYCLICAL
     Dates: start: 20250911, end: 20250911
  11. EPIRUBICIN [Suspect]
     Active Substance: EPIRUBICIN
     Indication: T-cell lymphoma stage III
     Dosage: 50 MG/M2, CYCLICAL (CYCLE 1 DAY 1)
     Route: 065
     Dates: start: 20250516, end: 20250516
  12. EPIRUBICIN [Suspect]
     Active Substance: EPIRUBICIN
     Dosage: 18.75 MG/M2, CYCLICAL (CYCLE 2 DAY 1)
     Route: 065
     Dates: start: 20250610, end: 20250610
  13. EPIRUBICIN [Suspect]
     Active Substance: EPIRUBICIN
     Dosage: 37.5 MG/M2, CYCLICAL (CYCLE 3 DAY 1)
     Route: 065
     Dates: start: 20250724, end: 20250724
  14. EPIRUBICIN [Suspect]
     Active Substance: EPIRUBICIN
     Dosage: 37.5 MG/M2, CYCLICAL
     Route: 065
     Dates: start: 20250821, end: 20250821
  15. EPIRUBICIN [Suspect]
     Active Substance: EPIRUBICIN
     Dosage: 28.12 MG/M2, CYCLICAL
     Route: 065
     Dates: start: 20250911, end: 20250911
  16. ONCOVIN [Suspect]
     Active Substance: VINCRISTINE SULFATE
     Indication: T-cell lymphoma stage III
     Dosage: 1.4 MG/M2, CYCLICAL (CYCLE 1 DAY 1)
     Route: 065
     Dates: start: 20250516, end: 20250516
  17. ONCOVIN [Suspect]
     Active Substance: VINCRISTINE SULFATE
     Dosage: 1.5 MG/M2, CYCLICAL (CYCLE 2 DAY 1)
     Route: 065
     Dates: start: 20250610, end: 20250610
  18. ONCOVIN [Suspect]
     Active Substance: VINCRISTINE SULFATE
     Dosage: 1.4 MG/M2, CYCLICAL (CYCLE 3 DAY 1)
     Route: 065
     Dates: start: 20250724, end: 20250724
  19. ONCOVIN [Suspect]
     Active Substance: VINCRISTINE SULFATE
     Dosage: 1.4 MG/M2, CYCLICAL
     Route: 065
     Dates: start: 20250821, end: 20250821
  20. ONCOVIN [Suspect]
     Active Substance: VINCRISTINE SULFATE
     Dosage: 1.5 MG/M2, CYCLICAL
     Route: 065
     Dates: start: 20250911, end: 20250911
  21. DOXORUBICIN [Suspect]
     Active Substance: DOXORUBICIN
     Indication: T-cell lymphoma stage III
     Dosage: 50 MILLIGRAM/SQ. METER, CYCLICAL (ON DAY 1 OF 21 DAYS CYLE)
  22. DOXORUBICIN [Suspect]
     Active Substance: DOXORUBICIN
     Dosage: 562.5 MILLIGRAM/SQ. METER
     Dates: start: 20250821, end: 20250821
  23. DOXORUBICIN [Suspect]
     Active Substance: DOXORUBICIN
     Dosage: 37.5 MILLIGRAM/SQ. METER, CYCLICAL
  24. VINCRISTINE SULFATE [Suspect]
     Active Substance: VINCRISTINE SULFATE
     Indication: Peripheral T-cell lymphoma unspecified stage III
     Dosage: 1.4 MILLIGRAM/SQ. METER, CYCLICAL (ON DAY 1 OF EACH 21 DAYS CYCLE)
  25. VINCRISTINE SULFATE [Suspect]
     Active Substance: VINCRISTINE SULFATE
     Dosage: 1.4 MILLIGRAM/SQ. METER
     Dates: start: 20250821, end: 20250821
  26. AMLODIPINE [Concomitant]
     Active Substance: AMLODIPINE BESYLATE
     Indication: Hypertension
     Dosage: 10 MILLIGRAM, ONCE A DAY
     Dates: start: 20220922
  27. AMLODIPINE [Concomitant]
     Active Substance: AMLODIPINE BESYLATE
     Dosage: 5 MILLIGRAM, ONCE A DAY
     Dates: start: 20250618
  28. ESCITALOPRAM [Concomitant]
     Active Substance: ESCITALOPRAM OXALATE
     Indication: Anxiety
     Dosage: 10 MILLIGRAM, ONCE A DAY
     Dates: start: 2005
  29. MIRTAZAPINE [Concomitant]
     Active Substance: MIRTAZAPINE
     Indication: Insomnia
     Dosage: 30 MILLIGRAM, ONCE A DAY
     Dates: start: 20240501, end: 20250806
  30. SIMVASTATIN [Concomitant]
     Active Substance: SIMVASTATIN
     Indication: Hyperlipidaemia
     Dosage: 80 MILLIGRAM, ONCE A DAY
     Dates: start: 20250506
  31. SODIUM CHLORIDE [Concomitant]
     Active Substance: SODIUM CHLORIDE
     Indication: Prophylaxis
     Dosage: 100 ML/HR, CONTINUOUS
     Dates: start: 20250505, end: 20250521
  32. SODIUM CHLORIDE [Concomitant]
     Active Substance: SODIUM CHLORIDE
     Indication: Fluid replacement
     Dosage: 75 ML/HR, CONTINUOUS
     Dates: start: 20250523, end: 20250526
  33. SODIUM CHLORIDE [Concomitant]
     Active Substance: SODIUM CHLORIDE
     Dosage: 75 ML/HR, CONTINUOUS
     Dates: start: 20250614, end: 20250614
  34. ACETAMINOPHEN [Concomitant]
     Active Substance: ACETAMINOPHEN
     Indication: Spinal pain
     Dosage: 650 MILLIGRAM, AS NECESSARY
     Dates: start: 20250506
  35. ALLOPURINOL [Concomitant]
     Active Substance: ALLOPURINOL
     Indication: Hyperuricaemia
     Dosage: 100 MILLIGRAM, TWO TIMES A DAY
     Dates: start: 20250506
  36. FUROSEMIDE [Concomitant]
     Active Substance: FUROSEMIDE
     Indication: Oedema peripheral
     Dosage: 40 MILLIGRAM, ONCE A DAY
     Dates: start: 20250506
  37. PANTOPRAZOLE [Concomitant]
     Active Substance: PANTOPRAZOLE
     Indication: Prophylaxis
     Dosage: 40 MILLIGRAM, ONCE A DAY
     Dates: start: 20250506
  38. CLOBETASOL [Concomitant]
     Active Substance: CLOBETASOL
     Indication: Petechiae
     Dosage: 0.05 PERCENT, TWO TIMES A DAY
     Dates: start: 20250506
  39. ONDANSETRON [Concomitant]
     Active Substance: ONDANSETRON
     Indication: Prophylaxis of nausea and vomiting
     Dosage: 4 MILLIGRAM, AS NECESSARY
     Dates: start: 20250506
  40. ACETAMINOPHEN\HYDROCODONE [Concomitant]
     Active Substance: ACETAMINOPHEN\HYDROCODONE
     Indication: Spinal pain
     Dosage: 5-325 MILLIGRAM, AS NECESSARY
     Dates: start: 20250507
  41. ACETAMINOPHEN\HYDROCODONE [Concomitant]
     Active Substance: ACETAMINOPHEN\HYDROCODONE
     Dosage: 5-325 MILLIGRAM, AS NECESSARY
     Dates: start: 20250608, end: 20250619
  42. ACETAMINOPHEN\HYDROCODONE [Concomitant]
     Active Substance: ACETAMINOPHEN\HYDROCODONE
     Dosage: 5-325 MILLIGRAM, ONCE A DAY
     Dates: start: 20250625, end: 20250625
  43. ACETAMINOPHEN\HYDROCODONE [Concomitant]
     Active Substance: ACETAMINOPHEN\HYDROCODONE
     Dosage: 5-325 MILLIGRAM, AS NECESSARY
     Dates: start: 20250626, end: 20250627
  44. METHYLPREDNISOLONE SODIUM SUCCINATE [Concomitant]
     Active Substance: METHYLPREDNISOLONE SODIUM SUCCINATE
     Indication: Lymphadenopathy
     Dosage: 250 MILLIGRAM, Q6H
     Dates: start: 20250508, end: 20250514
  45. METHYLPREDNISOLONE SODIUM SUCCINATE [Concomitant]
     Active Substance: METHYLPREDNISOLONE SODIUM SUCCINATE
     Dosage: 60 MILLIGRAM, Q6H
     Dates: start: 20250510, end: 20250510
  46. METHYLPREDNISOLONE SODIUM SUCCINATE [Concomitant]
     Active Substance: METHYLPREDNISOLONE SODIUM SUCCINATE
     Dosage: UNK
     Route: 065
  47. METHYLPREDNISOLONE SODIUM SUCCINATE [Concomitant]
     Active Substance: METHYLPREDNISOLONE SODIUM SUCCINATE
     Dosage: UNK
     Route: 065
  48. MAGNESIUM [Concomitant]
     Active Substance: MAGNESIUM
     Indication: Hypomagnesaemia
     Dosage: 2 GRAM, AS NECESSARY
     Dates: start: 20250508, end: 20250530
  49. MAGNESIUM [Concomitant]
     Active Substance: MAGNESIUM
     Dosage: 2 GRAM, AS NECESSARY
     Dates: start: 20250606, end: 20250623
  50. FOLIC ACID [Concomitant]
     Active Substance: FOLIC ACID
     Indication: Supplementation therapy
     Dosage: 1 MILLIGRAM, ONCE A DAY
     Dates: start: 20250508, end: 20250516
  51. MICONAZOLE [Concomitant]
     Active Substance: MICONAZOLE
     Indication: Petechiae
     Dosage: 2 PERCENT, Q12H
  52. INSULIN GLARGINE [Concomitant]
     Active Substance: INSULIN GLARGINE
     Indication: Hyperglycaemia
     Dosage: 14 INTERNATIONAL UNIT, ONCE A DAY
     Dates: start: 20250510, end: 20250510
  53. MUPIROCIN [Concomitant]
     Active Substance: MUPIROCIN
     Indication: Infection prophylaxis
     Dosage: UNK
  54. MUPIROCIN [Concomitant]
     Active Substance: MUPIROCIN
     Dosage: 0.5 GRAM, TWO TIMES A DAY
     Dates: start: 20250510
  55. immune globulin [Concomitant]
     Indication: Thrombocytopenia
     Dosage: 30 GRAM, ONCE A DAY
     Dates: start: 20250511, end: 20250514
  56. DIPHENHYDRAMINE [Concomitant]
     Active Substance: DIPHENHYDRAMINE
     Indication: Prophylaxis
     Dosage: UNK
     Route: 065
  57. DIPHENHYDRAMINE [Concomitant]
     Active Substance: DIPHENHYDRAMINE
     Dosage: 25 MILLIGRAM, AS NECESSARY
     Dates: start: 20250512
  58. DIPHENHYDRAMINE [Concomitant]
     Active Substance: DIPHENHYDRAMINE
     Dosage: 12.5 MILLIGRAM, ONCE A DAY
     Dates: start: 20250523, end: 20250523
  59. DIPHENHYDRAMINE [Concomitant]
     Active Substance: DIPHENHYDRAMINE
     Dosage: 12.5 MILLIGRAM, AS NECESSARY
     Dates: start: 20250617, end: 20250617
  60. OLANZAPINE [Concomitant]
     Active Substance: OLANZAPINE
     Indication: Insomnia
     Dosage: 2.5 MILLIGRAM, ONCE A DAY
     Dates: start: 20250512, end: 20250513
  61. POTASSIUM CHLORIDE [Concomitant]
     Active Substance: POTASSIUM CHLORIDE
     Indication: Hypokalaemia
     Dosage: 40 MEQ
     Dates: start: 20250513
  62. POTASSIUM CHLORIDE [Concomitant]
     Active Substance: POTASSIUM CHLORIDE
     Dosage: UNK
     Route: 065
  63. LORAZEPAM [Concomitant]
     Active Substance: LORAZEPAM
     Indication: Anxiety
     Dosage: 1 MILLIGRAM, AS NECESSARY
     Dates: start: 20250513
  64. LORAZEPAM [Concomitant]
     Active Substance: LORAZEPAM
     Dosage: 0.5 MILLIGRAM, AS NECESSARY
     Dates: start: 20250607, end: 20250625
  65. HYDRALAZINE [Concomitant]
     Active Substance: HYDRALAZINE HYDROCHLORIDE
     Indication: Hypertension
     Dosage: 5 MILLIGRAM, AS NECESSARY
     Dates: start: 20250515, end: 20250530
  66. HYDRALAZINE [Concomitant]
     Active Substance: HYDRALAZINE HYDROCHLORIDE
     Dosage: 10 MILLIGRAM, ONCE A DAY
     Dates: start: 20250523, end: 20250523
  67. HYDRALAZINE [Concomitant]
     Active Substance: HYDRALAZINE HYDROCHLORIDE
     Dosage: 5 MILLIGRAM, AS NECESSARY
     Dates: start: 20250613, end: 20250614
  68. HYDRALAZINE [Concomitant]
     Active Substance: HYDRALAZINE HYDROCHLORIDE
     Dosage: 10 MILLIGRAM, AS NECESSARY
     Dates: start: 20250615
  69. CEFEPIME [Concomitant]
     Active Substance: CEFEPIME HYDROCHLORIDE
     Indication: Febrile neutropenia
     Dosage: 2 GRAM, TWO TIMES A DAY
     Dates: start: 20250523, end: 20250527
  70. ACYCLOVIR [Concomitant]
     Active Substance: ACYCLOVIR
     Indication: Febrile neutropenia
     Dosage: 200 MILLIGRAM, Q12H
     Dates: start: 20250523, end: 20250525
  71. FILGRASTIM-SNDZ [Concomitant]
     Active Substance: FILGRASTIM-SNDZ
     Indication: Febrile neutropenia
     Dosage: 600 MILLIGRAM, ONCE A DAY
     Dates: start: 20250523, end: 20250526
  72. FILGRASTIM-SNDZ [Concomitant]
     Active Substance: FILGRASTIM-SNDZ
     Indication: Infection prophylaxis
     Dosage: 480 MICROGRAM, ONCE A DAY
     Dates: start: 20250521, end: 20250522
  73. FILGRASTIM-SNDZ [Concomitant]
     Active Substance: FILGRASTIM-SNDZ
     Dosage: 600 MILLIGRAM, ONCE A DAY
     Dates: start: 20250523, end: 20250527
  74. FILGRASTIM-SNDZ [Concomitant]
     Active Substance: FILGRASTIM-SNDZ
     Dosage: 480 MICROGRAM, ONCE A DAY
     Dates: start: 20250611, end: 20250611
  75. FILGRASTIM-SNDZ [Concomitant]
     Active Substance: FILGRASTIM-SNDZ
     Dosage: 480 MICROGRAM, ONCE A DAY
     Dates: start: 20250614, end: 20250617
  76. FILGRASTIM-SNDZ [Concomitant]
     Active Substance: FILGRASTIM-SNDZ
     Dosage: 600 MILLIGRAM, ONCE A DAY
     Dates: start: 20250618, end: 20250620
  77. PERMETHRIN [Concomitant]
     Active Substance: PERMETHRIN
     Indication: Lice infestation
     Dosage: 1 PERCENT, EVERY WEEK
     Dates: start: 20250520, end: 20250530
  78. MORPHINE [Concomitant]
     Active Substance: MORPHINE
     Indication: Spinal pain
     Dosage: 2 MILLIGRAM, AS NECESSARY
     Dates: start: 20250521, end: 20250525
  79. QUETIAPINE [Concomitant]
     Active Substance: QUETIAPINE
     Indication: Insomnia
     Dosage: 25 MILLIGRAM, ONCE A DAY
     Dates: start: 20250521, end: 20250522
  80. LISINOPRIL [Concomitant]
     Active Substance: LISINOPRIL
     Indication: Hypertension
     Dosage: 5 MILLIGRAM, ONCE A DAY
     Dates: start: 20250521, end: 20250530
  81. LISINOPRIL [Concomitant]
     Active Substance: LISINOPRIL
     Dosage: 5 MILLIGRAM, ONCE A DAY
     Dates: start: 20250606, end: 20250607
  82. LISINOPRIL [Concomitant]
     Active Substance: LISINOPRIL
     Dosage: 10 MILLIGRAM, ONCE A DAY
     Dates: start: 20250608, end: 20250614
  83. LISINOPRIL [Concomitant]
     Active Substance: LISINOPRIL
     Dosage: 20 MILLIGRAM, ONCE A DAY
     Dates: start: 20250615, end: 20250617
  84. LISINOPRIL [Concomitant]
     Active Substance: LISINOPRIL
     Dosage: 40 MILLIGRAM, ONCE A DAY
     Dates: start: 20250618
  85. CARBOXYMETHYLCELLULOSE SODIUM\DEVICE\SORBINICATE [Concomitant]
     Active Substance: CARBOXYMETHYLCELLULOSE SODIUM\DEVICE\SORBINICATE
     Indication: Mouth ulceration
     Dosage: 4 MILLIGRAM, ONCE A DAY
     Dates: start: 20250522, end: 20250523
  86. CARBOXYMETHYLCELLULOSE SODIUM\DEVICE\SORBINICATE [Concomitant]
     Active Substance: CARBOXYMETHYLCELLULOSE SODIUM\DEVICE\SORBINICATE
     Dosage: 4 MILLIGRAM, AS NECESSARY
     Dates: start: 20250617
  87. LOPERAMIDE [Concomitant]
     Active Substance: LOPERAMIDE
     Indication: Diarrhoea
     Dosage: 2 MILLIGRAM, FOUR TIMES/DAY
     Dates: start: 20250518, end: 20250523
  88. FLUCONAZOLE [Concomitant]
     Active Substance: FLUCONAZOLE
     Indication: Prophylaxis
     Dosage: 400 MILLIGRAM, ONCE A DAY
     Dates: start: 20250522, end: 20250523
  89. LEVOFLOXACIN [Concomitant]
     Active Substance: LEVOFLOXACIN
     Indication: Prophylaxis
     Dosage: 500 MILLIGRAM, ONCE A DAY
     Dates: start: 20250522, end: 20250522
  90. ACYCLOVIR [Concomitant]
     Active Substance: ACYCLOVIR
     Indication: Prophylaxis
     Dosage: 400 MILLIGRAM, TWO TIMES A DAY
     Dates: start: 20250522, end: 20250523
  91. DIPHENHYDRAMINE [Concomitant]
     Active Substance: DIPHENHYDRAMINE
     Indication: Insomnia
     Dosage: 12.5 MILLIGRAM, ONCE A DAY
     Dates: start: 20250523, end: 20250523
  92. DIPHENHYDRAMINE [Concomitant]
     Active Substance: DIPHENHYDRAMINE
     Indication: Prophylaxis
     Dosage: 12.5 MILLIGRAM, AS NECESSARY
     Dates: start: 20250617, end: 20250617
  93. DIPHENHYDRAMINE [Concomitant]
     Active Substance: DIPHENHYDRAMINE
     Dosage: 25 MILLIGRAM, AS NECESSARY
     Dates: start: 20250615
  94. MIRTAZAPINE [Concomitant]
     Active Substance: MIRTAZAPINE
     Indication: Insomnia
     Dosage: 45 MILLIGRAM, ONCE A DAY
     Dates: start: 20250524, end: 20250529
  95. ACYCLOVIR [Concomitant]
     Active Substance: ACYCLOVIR
     Indication: Prophylaxis
     Dosage: 200 MILLIGRAM, TWO TIMES A DAY
     Dates: start: 20250523, end: 20250525
  96. CEFEPIME [Concomitant]
     Active Substance: CEFEPIME HYDROCHLORIDE
     Indication: Prophylaxis
     Dosage: 2 GRAM, TWO TIMES A DAY
     Dates: start: 20250523, end: 20250527
  97. FLUCONAZOLE [Concomitant]
     Active Substance: FLUCONAZOLE
     Indication: Prophylaxis
     Dosage: 400 MILLIGRAM, ONCE A DAY
     Dates: start: 20250524, end: 20250525
  98. CHLORHEXIDINE [Concomitant]
     Active Substance: CHLORHEXIDINE
     Indication: Infection prophylaxis
     Dosage: 15 MILLILITER, TWO TIMES A DAY
     Dates: start: 20250525, end: 20250530
  99. calcium gluconate in NaCl [Concomitant]
     Indication: Hypocalcaemia
     Dosage: 2 GRAM, ONCE A DAY
     Dates: start: 20250525, end: 20250525
  100. calcium gluconate in NaCl [Concomitant]
     Dosage: 2 GRAM, ONCE A DAY
     Dates: start: 20250619, end: 20250619
  101. calcium gluconate in NaCl [Concomitant]
     Dosage: 2 GRAM, ONCE A DAY
     Dates: start: 20250527, end: 20250527
  102. MAGNESIUM SULFATE [Concomitant]
     Active Substance: MAGNESIUM SULFATE
     Indication: Hypomagnesaemia
     Dosage: 2 GRAM, TWO TIMES A DAY
     Dates: start: 20250527, end: 20250527
  103. MAGNESIUM SULFATE [Concomitant]
     Active Substance: MAGNESIUM SULFATE
     Dosage: 2 GRAM, AS NECESSARY
     Dates: start: 20250606
  104. MAGNESIUM SULFATE [Concomitant]
     Active Substance: MAGNESIUM SULFATE
     Dosage: 2 GRAM, AS NECESSARY
     Dates: start: 20250609, end: 20250609
  105. ALTEPLASE [Concomitant]
     Active Substance: ALTEPLASE
     Indication: Prophylaxis
     Dosage: 1 MILLIGRAM, ONCE A DAY
     Dates: start: 20250527, end: 20250527
  106. LOPERAMIDE [Concomitant]
     Active Substance: LOPERAMIDE
     Indication: Diarrhoea
     Dosage: 2 MILLIGRAM, Q4H
     Dates: start: 20250528, end: 20250530
  107. LOPERAMIDE [Concomitant]
     Active Substance: LOPERAMIDE
     Dosage: 2 MILLIGRAM, FOUR TIMES/DAY
     Dates: start: 20250622
  108. MIRTAZAPINE [Concomitant]
     Active Substance: MIRTAZAPINE
     Indication: Insomnia
     Dosage: 45 MILLIGRAM, ONCE A DAY
     Dates: start: 20250524, end: 20250529
  109. MIRTAZAPINE [Concomitant]
     Active Substance: MIRTAZAPINE
     Dosage: 45 MILLIGRAM, ONCE A DAY
     Dates: start: 20250605
  110. POTASSIUM CHLORIDE [Concomitant]
     Active Substance: POTASSIUM CHLORIDE
     Indication: Hypokalaemia
     Dosage: 10 MEQ, AS NEEDED
     Dates: start: 20250619, end: 20250621
  111. POTASSIUM CHLORIDE [Concomitant]
     Active Substance: POTASSIUM CHLORIDE
     Dosage: 20 MEQ, AS NEEDED
     Dates: start: 20250607, end: 20250617
  112. POTASSIUM CHLORIDE [Concomitant]
     Active Substance: POTASSIUM CHLORIDE
     Indication: Hypokalaemia
     Dosage: UNK, AS NECESSARY (40 MEQ)
     Dates: start: 20250513
  113. POTASSIUM CHLORIDE [Concomitant]
     Active Substance: POTASSIUM CHLORIDE
     Dosage: UNK UNK, AS NECESSARY (20 MEQ)
     Dates: start: 20250606
  114. SODIUM CHLORIDE [Concomitant]
     Active Substance: SODIUM CHLORIDE
     Indication: Fluid replacement
     Dosage: 1000 MILLILITER, ONCE A DAY
     Dates: start: 20250605, end: 20250605
  115. DICYCLOMINE [Concomitant]
     Active Substance: DICYCLOMINE HYDROCHLORIDE
     Indication: Diarrhoea
     Dosage: 20 MILLIGRAM, FOUR TIMES/DAY
     Dates: start: 20250607, end: 20250625
  116. GUAIFENESIN [Concomitant]
     Active Substance: GUAIFENESIN
     Indication: Cough
     Dosage: 600 MILLIGRAM, TWO TIMES A DAY
     Dates: start: 20250607
  117. CHLORHEXIDINE [Concomitant]
     Active Substance: CHLORHEXIDINE
     Indication: Mouth ulceration
     Dosage: 15 MILLILITER, ONCE A DAY
     Dates: start: 20250609, end: 20250618
  118. CHLORHEXIDINE [Concomitant]
     Active Substance: CHLORHEXIDINE
     Dosage: 15 MILLILITER, TWO TIMES A DAY
     Dates: start: 20250626, end: 20250627
  119. BUMETANIDE [Concomitant]
     Active Substance: BUMETANIDE
     Indication: Oedema peripheral
     Dosage: 2 MILLIGRAM, ONCE A DAY
     Dates: start: 20250609, end: 20250609
  120. POTASSIUM PHOSPHATE [Concomitant]
     Active Substance: POTASSIUM PHOSPHATE
     Indication: Hypokalaemia
     Dosage: 10 MILLIMOLE, ONCE A DAY
     Dates: start: 20250609, end: 20250609
  121. PHOSPHORUS [Concomitant]
     Active Substance: PHOSPHORUS
     Indication: Hypophosphataemia
     Dosage: 2 DOSAGE FORM, AS NECESSARY
     Dates: start: 20250622
  122. APREPITANT [Concomitant]
     Active Substance: APREPITANT
     Indication: Prophylaxis of nausea and vomiting
     Dosage: 130 MILLIGRAM, ONCE A DAY
     Dates: start: 20250610, end: 20250610
  123. PALONOSETRON [Concomitant]
     Active Substance: PALONOSETRON
     Indication: Prophylaxis of nausea and vomiting
     Dosage: 0.25 MILLIGRAM, ONCE A DAY
     Dates: start: 20250610, end: 20250610
  124. PHYTONADIONE [Concomitant]
     Active Substance: PHYTONADIONE
     Indication: Rectal haemorrhage
     Dosage: 10 MILLIGRAM, ONCE A DAY
     Dates: start: 20250615, end: 20250615
  125. OCTREOTIDE [Concomitant]
     Active Substance: OCTREOTIDE
     Indication: Diarrhoea
     Dosage: 100 MICROGRAM, 3 TIMES A DAY
     Dates: start: 20250616, end: 20250617
  126. OCTREOTIDE [Concomitant]
     Active Substance: OCTREOTIDE
     Dosage: 300 MICROGRAM, ONCE A DAY
     Dates: start: 20250617, end: 20250625
  127. ONDANSETRON [Concomitant]
     Active Substance: ONDANSETRON
     Indication: Nausea
     Dosage: 4 MILLIGRAM, AS NECESSARY
     Dates: start: 20250616, end: 20250626
  128. LOPERAMIDE [Concomitant]
     Active Substance: LOPERAMIDE
     Indication: Diarrhoea
     Dosage: 2 MILLIGRAM, AS NECESSARY
     Dates: start: 20250617, end: 20250621
  129. LOPERAMIDE [Concomitant]
     Active Substance: LOPERAMIDE
     Dosage: 2 MILLIGRAM, FOUR TIMES/DAY
     Dates: start: 20250622
  130. METRONIDAZOLE [Concomitant]
     Active Substance: METRONIDAZOLE
     Indication: Diarrhoea
     Dosage: 500 MILLIGRAM, 3 TIMES A DAY
     Dates: start: 20250617, end: 20250625
  131. METRONIDAZOLE [Concomitant]
     Active Substance: METRONIDAZOLE
     Dosage: 500 MILLIGRAM, 3 TIMES A DAY
     Dates: start: 20250626
  132. COLESTIPOL [Concomitant]
     Active Substance: COLESTIPOL
     Indication: Hypercholesterolaemia
     Dosage: 2 GRAM, TWO TIMES A DAY
     Dates: start: 20250618
  133. FUROSEMIDE [Concomitant]
     Active Substance: FUROSEMIDE
     Indication: Oedema peripheral
     Dosage: 20 MILLIGRAM, ONCE A DAY
     Dates: start: 20250618, end: 20250620
  134. CHLORHEXIDINE [Concomitant]
     Active Substance: CHLORHEXIDINE
     Indication: Mouth ulceration
     Dosage: 15 MILLILITER, TWO TIMES A DAY
     Dates: start: 20250626, end: 20250627
  135. DOCUSATE SODIUM [Concomitant]
     Active Substance: DOCUSATE SODIUM
     Indication: Constipation prophylaxis
     Dosage: 100 MILLIGRAM, TWO TIMES A DAY
     Dates: start: 20250626, end: 20250626
  136. ENOXAPARIN [Concomitant]
     Active Substance: ENOXAPARIN
     Indication: Thrombosis prophylaxis
     Dosage: 40 MILLIGRAM, ONCE A DAY
     Dates: start: 20250626, end: 20250627
  137. METRONIDAZOLE [Concomitant]
     Active Substance: METRONIDAZOLE
     Indication: Diarrhoea
     Dosage: 500 MILLIGRAM, 3 TIMES A DAY
     Dates: start: 20250626
  138. POLYMYXIN B SULFATE;TRIMETHOPRIM [Concomitant]
     Indication: Product used for unknown indication
     Dosage: 2 DROP, FOUR TIMES/DAY
     Dates: start: 20250607, end: 20250608
  139. POLYMYXIN B SULFATE;TRIMETHOPRIM [Concomitant]
     Dosage: 2 DROP, FOUR TIMES/DAY
     Dates: start: 20250608, end: 20250615
  140. OXYCODONE AND ACETAMINOPHEN [Concomitant]
     Active Substance: ACETAMINOPHEN\OXYCODONE HYDROCHLORIDE
     Indication: Product used for unknown indication
     Dosage: UNK UNK, AS NECESSARY (5-325 MILLIGRAM)
     Dates: start: 20250614
  141. BALSAM PERU + CASTOR OIL [Concomitant]
     Indication: Product used for unknown indication
     Dosage: UNK UNK, TWO TIMES A DAY (1 APPLICATION)
     Dates: start: 20250619
  142. ATROPINE\DIPHENOXYLATE [Concomitant]
     Active Substance: ATROPINE\DIPHENOXYLATE
     Indication: Diarrhoea
     Dosage: 1 DOSAGE FORM, FOUR TIMES/DAY
     Dates: start: 20250606, end: 20250609
  143. BARRIER CREAM [Concomitant]
     Active Substance: ZINC OXIDE
     Indication: Product used for unknown indication
     Dosage: UNK, 3 TIMES A DAY (1 APPLICATION)
     Dates: start: 20250619
  144. LANTUS [Concomitant]
     Active Substance: INSULIN GLARGINE
     Indication: Product used for unknown indication
     Dosage: 20 INTERNATIONAL UNIT, ONCE A DAY
     Dates: start: 20250814, end: 20250820
  145. DIPHENHYDRAMINE [Concomitant]
     Active Substance: DIPHENHYDRAMINE
     Indication: Prophylaxis
     Dosage: 25 MILLIGRAM, ONCE A DAY
     Dates: start: 20250826
  146. GADOTERATE MEGLUMINE [Concomitant]
     Active Substance: GADOTERATE MEGLUMINE
     Indication: Product used for unknown indication
     Dosage: 15.3 MILLILITER, ONCE A DAY
     Dates: start: 20250918, end: 20250918
  147. RAMELTEON [Concomitant]
     Active Substance: RAMELTEON
     Indication: Insomnia
     Dosage: 8 MILLIGRAM, ONCE A DAY
     Dates: start: 20250917
  148. ATORVASTATIN [Concomitant]
     Active Substance: ATORVASTATIN
     Indication: Hyperlipidaemia
     Dosage: 40 MILLIGRAM, ONCE A DAY
     Dates: start: 20250917
  149. LACTATED RINGERS SOLUTION [Concomitant]
     Active Substance: CALCIUM CHLORIDE\POTASSIUM CHLORIDE\SODIUM CHLORIDE\SODIUM LACTATE
     Indication: Supportive care
     Dosage: 1779 MILLILITER, ONCE A DAY
     Dates: start: 20250917, end: 20250917
  150. DIAZEPAM [Concomitant]
     Active Substance: DIAZEPAM
     Indication: Sedation
     Dosage: 5 MILLIGRAM, ONCE A DAY
     Dates: start: 20250917, end: 20250917
  151. VALACYCLOVIR [Concomitant]
     Active Substance: VALACYCLOVIR HYDROCHLORIDE
     Indication: Antiviral prophylaxis
     Dosage: 1000 MILLIGRAM, TWO TIMES A DAY
     Dates: start: 20250831
  152. MENTHOL [Concomitant]
     Active Substance: MENTHOL
     Indication: Echocardiogram
     Dosage: 1 MILLIGRAM, AS NECESSARY
     Dates: start: 20250811
  153. LACTOBACILLUS ACIDOPHILUS [Concomitant]
     Active Substance: LACTOBACILLUS ACIDOPHILUS
     Indication: Supplementation therapy
     Dosage: 1 DOSAGE FORM (PACKET)
     Dates: start: 20250831
  154. Immuneglobulin [Concomitant]
     Indication: Thrombocytopenia
     Dosage: 30 GRAM, ONCE A DAY
     Dates: start: 20250511, end: 20250511
  155. Immuneglobulin [Concomitant]
     Dosage: 30 GRAM, ONCE A DAY
     Dates: start: 20250514, end: 20250514

REACTIONS (33)
  - Embolism venous [Recovered/Resolved]
  - Syncope [Recovered/Resolved]
  - Diarrhoea [Recovered/Resolved]
  - Asthenia [Recovered/Resolved]
  - Febrile neutropenia [Recovered/Resolved]
  - Rectal haemorrhage [Recovered/Resolved]
  - Hypokalaemia [Recovered/Resolved]
  - Failure to thrive [Recovered/Resolved]
  - Rectal ulcer [Not Recovered/Not Resolved]
  - Acute kidney injury [Not Recovered/Not Resolved]
  - Hypertension [Not Recovered/Not Resolved]
  - Thrombocytopenia [Recovered/Resolved with Sequelae]
  - Pain in extremity [Not Recovered/Not Resolved]
  - Mouth ulceration [Not Recovered/Not Resolved]
  - Hypercholesterolaemia [Not Recovered/Not Resolved]
  - Osteoarthritis [Not Recovered/Not Resolved]
  - Oedema peripheral [Not Recovered/Not Resolved]
  - Skin laceration [Not Recovered/Not Resolved]
  - Anaemia [Recovered/Resolved with Sequelae]
  - Hypocalcaemia [Not Recovered/Not Resolved]
  - Hyperglycaemia [Recovered/Resolved]
  - Conjunctivitis [Not Recovered/Not Resolved]
  - Abdominal pain [Not Recovered/Not Resolved]
  - Haematuria [Recovered/Resolved]
  - Nausea [Recovered/Resolved]
  - Decreased appetite [Not Recovered/Not Resolved]
  - Lice infestation [Recovered/Resolved]
  - Skin abrasion [Recovering/Resolving]
  - Hypophosphataemia [Recovered/Resolved]
  - Cough [Not Recovered/Not Resolved]
  - Fall [Recovered/Resolved]
  - Weight decreased [Not Recovered/Not Resolved]
  - Dehydration [Recovered/Resolved]

NARRATIVE: CASE EVENT DATE: 20250508
